FAERS Safety Report 6151485-4 (Version None)
Quarter: 2009Q2

REPORT INFORMATION
  Report Type: 
  Country: None (occurrence: None)
  Receive Date: 20090408
  Receipt Date: 20090330
  Transmission Date: 20091009
  Serious: No
  Sender: FDA-Public Use
  Company Number: 2008SP013319

PATIENT
  Age: 68 Year
  Sex: Male
  Weight: 75 kg

DRUGS (2)
  1. REBETOL [Suspect]
     Indication: HEPATITIS C
     Dates: start: 20051022, end: 20051105
  2. PEGASYS [Suspect]
     Indication: HEPATITIS C
     Dates: start: 20051022, end: 20051105

REACTIONS (1)
  - ANGINA PECTORIS [None]
